FAERS Safety Report 24568668 (Version 2)
Quarter: 2024Q4

REPORT INFORMATION
  Report Type: Report from Study
  Country: US (occurrence: US)
  Receive Date: 20241031
  Receipt Date: 20241106
  Transmission Date: 20250115
  Serious: No
  Sender: ABBVIE
  Company Number: US-ABBVIE-5980156

PATIENT
  Age: 64 Year
  Sex: Female
  Weight: 64.41 kg

DRUGS (2)
  1. SYNTHROID [Suspect]
     Active Substance: LEVOTHYROXINE SODIUM
     Indication: Hypothyroidism
     Dosage: START DATE TEXT: AT LEAST FIVE YEARS AGO, 75 MCG / 1 TABLET DAILY
     Route: 048
     Dates: end: 202410
  2. SYNTHROID [Suspect]
     Active Substance: LEVOTHYROXINE SODIUM
     Indication: Hypothyroidism
     Dosage: 50 MCG / 1 ? TABLET DAILY
     Route: 048
     Dates: start: 202410

REACTIONS (5)
  - Multiple allergies [Recovered/Resolved]
  - Urticaria [Recovered/Resolved]
  - Skin haemorrhage [Unknown]
  - Urticaria [Unknown]
  - Allergic reaction to excipient [Unknown]

NARRATIVE: CASE EVENT DATE: 20220101
